FAERS Safety Report 9434312 (Version 1)
Quarter: 2013Q3

REPORT INFORMATION
  Report Type: Spontaneous
  Country: US (occurrence: None)
  Receive Date: 20130731
  Receipt Date: 20130731
  Transmission Date: 20140515
  Serious: No
  Sender: FDA-Public Use
  Company Number: None

PATIENT
  Age: 61 Year
  Sex: Male

DRUGS (5)
  1. ISONIAZID [Suspect]
     Indication: TUBERCULIN TEST POSITIVE
     Dates: start: 20110320, end: 20110515
  2. WELLBUTRIN [Concomitant]
  3. OMEPRAZOLE [Concomitant]
  4. SAME [Concomitant]
  5. VIT D [Concomitant]

REACTIONS (1)
  - Drug-induced liver injury [None]
